FAERS Safety Report 18705185 (Version 1)
Quarter: 2021Q1

REPORT INFORMATION
  Report Type: Other
  Country: GB (occurrence: GB)
  Receive Date: 20210106
  Receipt Date: 20210106
  Transmission Date: 20210419
  Serious: Yes (Hospitalization, Other)
  Sender: FDA-Public Use
  Company Number: GB-ROCHE-2742358

PATIENT
  Age: 56 Year
  Sex: Male

DRUGS (2)
  1. ACTILYSE [Suspect]
     Active Substance: ALTEPLASE
     Dosage: FOLLOWED BY 90 MG INFUSION OVER 2 H.
     Route: 040
  2. ACTILYSE [Suspect]
     Active Substance: ALTEPLASE
     Indication: PULMONARY EMBOLISM
     Route: 040

REACTIONS (4)
  - Acute kidney injury [Unknown]
  - Pulmonary embolism [Unknown]
  - Respiratory failure [Unknown]
  - Haemodynamic instability [Unknown]
